FAERS Safety Report 9455761 (Version 7)
Quarter: 2014Q1

REPORT INFORMATION
  Report Type: Spontaneous
  Country: DE (occurrence: DE)
  Receive Date: 20130813
  Receipt Date: 20140203
  Transmission Date: 20141002
  Serious: Yes (Hospitalization, Other)
  Sender: FDA-Public Use
  Company Number: DE-JNJFOC-20130804647

PATIENT
  Age: 72 Year
  Sex: Male
  Weight: 85 kg

DRUGS (7)
  1. XARELTO [Suspect]
     Indication: THROMBOSIS PROPHYLAXIS
     Route: 048
     Dates: start: 20130508, end: 20130704
  2. XARELTO [Suspect]
     Indication: THROMBOSIS PROPHYLAXIS
     Route: 048
     Dates: start: 20130312, end: 20130405
  3. XARELTO [Suspect]
     Indication: THROMBOSIS
     Route: 048
     Dates: start: 20130508, end: 20130704
  4. XARELTO [Suspect]
     Indication: THROMBOSIS
     Route: 048
     Dates: start: 20130312, end: 20130405
  5. CLEXANE [Concomitant]
     Route: 065
  6. MEDYN [Concomitant]
     Route: 065
  7. MARCUMAR [Concomitant]
     Route: 065

REACTIONS (14)
  - Blood sodium decreased [Not Recovered/Not Resolved]
  - Lung cancer metastatic [Unknown]
  - Ectopic antidiuretic hormone secretion [Unknown]
  - Localised oedema [Unknown]
  - Fatigue [Unknown]
  - Asthenia [Not Recovered/Not Resolved]
  - Muscular weakness [Unknown]
  - Eye disorder [Unknown]
  - Malaise [Unknown]
  - Muscle tightness [Unknown]
  - Dizziness [Unknown]
  - Disturbance in attention [Unknown]
  - Depressed mood [Unknown]
  - Vision blurred [Unknown]
